FAERS Safety Report 7445624-2 (Version None)
Quarter: 2011Q2

REPORT INFORMATION
  Report Type: 
  Country: None (occurrence: None)
  Receive Date: 20110429
  Receipt Date: 20110425
  Transmission Date: 20111010
  Serious: Yes (Other)
  Sender: FDA-Public Use
  Company Number: BR-ROCHE-773416

PATIENT
  Sex: Female
  Weight: 60 kg

DRUGS (13)
  1. TOCILIZUMAB [Suspect]
     Indication: RHEUMATOID ARTHRITIS
     Route: 065
     Dates: start: 20100813, end: 20110119
  2. SONIN [Concomitant]
  3. CITALOPRAM [Concomitant]
  4. METICORTEN [Concomitant]
  5. VITAMIN B [Concomitant]
  6. DIOSMIN [Concomitant]
  7. BROMAZEPAM [Concomitant]
  8. ATENOLOL [Concomitant]
  9. OSTEONUTRI [Concomitant]
  10. ADEROGIL D3 [Concomitant]
  11. NEUTROFER [Concomitant]
  12. METHOTREXATE [Concomitant]
  13. OMEPRAZOLE [Concomitant]

REACTIONS (6)
  - FALL [None]
  - LIMB INJURY [None]
  - HAEMORRHAGE [None]
  - ANAEMIA [None]
  - INFECTION [None]
  - HYPOTENSION [None]
